FAERS Safety Report 7775272-6 (Version None)
Quarter: 2011Q3

REPORT INFORMATION
  Report Type: 
  Country: None (occurrence: None)
  Receive Date: 20110921
  Receipt Date: 20110912
  Transmission Date: 20111222
  Serious: Yes (Hospitalization)
  Sender: FDA-Public Use
  Company Number: 2011SP030685

PATIENT
  Age: 60 Year
  Sex: Female
  Weight: 68 kg

DRUGS (7)
  1. RIBAVIRIN [Suspect]
     Indication: HEPATITIS C
     Dosage: 5 DF;QD;PO
     Route: 048
     Dates: start: 20110101
  2. VENLAFAXINE HYDROCHLORIDE [Concomitant]
  3. TIBOLONE [Concomitant]
  4. PEG-INTRON [Suspect]
     Indication: HEPATITIS C
     Dosage: 100 MG;SC
     Route: 058
     Dates: start: 20110101
  5. FOLIC ACID [Concomitant]
  6. TIBIAL [Concomitant]
  7. HYGROTON [Concomitant]

REACTIONS (10)
  - WEIGHT DECREASED [None]
  - ALOPECIA [None]
  - ARTHRALGIA [None]
  - ABDOMINAL PAIN UPPER [None]
  - PRURITUS [None]
  - ASTHENIA [None]
  - NEPHROLITHIASIS [None]
  - ANAEMIA [None]
  - HEADACHE [None]
  - DECREASED APPETITE [None]
